FAERS Safety Report 10004475 (Version 1)
Quarter: 2014Q1

REPORT INFORMATION
  Report Type: Spontaneous
  Country: US (occurrence: US)
  Receive Date: 20140312
  Receipt Date: 20140312
  Transmission Date: 20141002
  Serious: Yes (Other)
  Sender: FDA-Public Use
  Company Number: US-INCYTE CORPORATION-2013IN003015

PATIENT
  Sex: Female
  Weight: 58.05 kg

DRUGS (12)
  1. JAKAFI [Suspect]
     Indication: MYELOFIBROSIS
     Dosage: 15 MG, BID
     Route: 048
     Dates: start: 201308
  2. PREMARIN [Concomitant]
     Route: 067
  3. DILTIAZEM [Concomitant]
  4. CLOBETASOL [Concomitant]
     Route: 061
  5. METRONIDAZOLE [Concomitant]
     Route: 061
  6. ADVAIR [Concomitant]
     Dosage: 250/50 DISKUS
     Route: 055
  7. OMEPRAZOLE DR [Concomitant]
     Dosage: UNK
  8. MAGNESIUM OXIDE [Concomitant]
     Dosage: UNK
  9. SPIRIVA HANDIHALER [Concomitant]
     Route: 055
  10. VITAMIN C                          /00008001/ [Concomitant]
     Dosage: 500 MG, UNK
  11. CALCIUM [Concomitant]
     Dosage: 600 MG, UNK
  12. COLACE [Concomitant]
     Dosage: 100 MG, UNK

REACTIONS (1)
  - Blood count abnormal [Unknown]
